FAERS Safety Report 18553459 (Version 4)
Quarter: 2021Q1

REPORT INFORMATION
  Report Type: Not Available
  Country: US (occurrence: US)
  Receive Date: 20201127
  Receipt Date: 20210216
  Transmission Date: 20210419
  Serious: Yes (Other)
  Sender: FDA-Public Use
  Company Number: US-NEUROCRINE BIOSCIENCES INC.-2020NBI04225

PATIENT
  Age: 51 Year
  Sex: Female
  Weight: 59.5 kg

DRUGS (12)
  1. INGREZZA [Suspect]
     Active Substance: VALBENAZINE
     Indication: TARDIVE DYSKINESIA
     Dosage: AT BEDTIME
     Route: 048
     Dates: start: 20200810, end: 20200910
  2. CLONAZEPAM. [Concomitant]
     Active Substance: CLONAZEPAM
     Indication: ANXIETY
     Dosage: AT BEDTIME
     Route: 048
     Dates: start: 20201130
  3. MIRTAZAPINE. [Concomitant]
     Active Substance: MIRTAZAPINE
     Indication: ANXIETY
  4. CAPLYTA [Concomitant]
     Active Substance: LUMATEPERONE
     Indication: PSYCHOTIC DISORDER
     Route: 048
     Dates: start: 20200604
  5. DUONEB [Concomitant]
     Active Substance: ALBUTEROL SULFATE\IPRATROPIUM BROMIDE
     Dosage: (0.5MG?2.5MG/3ML) INHALATION SOLUTION 3 ML; FOUR TIMES A DAY
  6. INGREZZA [Suspect]
     Active Substance: VALBENAZINE
     Dosage: AT BEDTIME
     Route: 048
     Dates: start: 20200910
  7. SERTRALINE [Concomitant]
     Active Substance: SERTRALINE HYDROCHLORIDE
     Indication: DEPRESSION
     Dosage: AT BEDTIME
     Route: 048
     Dates: start: 20200227
  8. CAPLYTA [Concomitant]
     Active Substance: LUMATEPERONE
     Indication: SCHIZOPHRENIA
  9. VARENICLINE [Concomitant]
     Active Substance: VARENICLINE
     Route: 048
  10. TRELEGY ELLIPTA [Concomitant]
     Active Substance: FLUTICASONE FUROATE\UMECLIDINIUM BROMIDE\VILANTEROL TRIFENATATE
     Dosage: 200MCG?62.5MCG?25MCG/INHALATION, 1 PUFF IN THE MORNING
  11. MIRTAZAPINE. [Concomitant]
     Active Substance: MIRTAZAPINE
     Indication: DEPRESSION
     Route: 048
     Dates: start: 20200507
  12. ALBUTEROL. [Concomitant]
     Active Substance: ALBUTEROL
     Dosage: 90 MCG/INHALATION; 2 PUFFS EVERY 4 HOURS AS NEEDED

REACTIONS (3)
  - Viral infection [Recovering/Resolving]
  - Non-small cell lung cancer stage IV [Unknown]
  - Chronic obstructive pulmonary disease [Unknown]

NARRATIVE: CASE EVENT DATE: 20201030
